FAERS Safety Report 6018302-4 (Version None)
Quarter: 2008Q4

REPORT INFORMATION
  Report Type: 
  Country: None (occurrence: None)
  Receive Date: 20081223
  Receipt Date: 20081217
  Transmission Date: 20090506
  Serious: Yes (Hospitalization, Other)
  Sender: FDA-Public Use
  Company Number: US-ABBOTT-08P-163-0493496-00

PATIENT
  Sex: Female
  Weight: 103.97 kg

DRUGS (1)
  1. LUPRON DEPOT [Suspect]
     Indication: POLYCYSTIC OVARIES
     Route: 050
     Dates: start: 20080910, end: 20081014

REACTIONS (2)
  - STAPHYLOCOCCAL INFECTION [None]
  - WOUND [None]
